FAERS Safety Report 4378676-7 (Version None)
Quarter: 2004Q2

REPORT INFORMATION
  Report Type: 
  Country: None (occurrence: None)
  Receive Date: 20040616
  Receipt Date: 20040604
  Transmission Date: 20050107
  Serious: Yes (Hospitalization)
  Sender: FDA-Public Use
  Company Number: NO-ROCHE-369989

PATIENT
  Age: 45 Year
  Sex: Female

DRUGS (2)
  1. PEGASYS [Suspect]
     Route: 058
     Dates: start: 20030507, end: 20040430
  2. COPEGUS [Concomitant]
     Route: 048
     Dates: start: 20030507, end: 20040430

REACTIONS (1)
  - PERICARDITIS [None]
